FAERS Safety Report 9909126 (Version 2)
Quarter: 2014Q3

REPORT INFORMATION
  Report Type: Spontaneous
  Country: US (occurrence: None)
  Receive Date: 20140212
  Receipt Date: 20140801
  Transmission Date: 20150326
  Serious: Yes (Hospitalization, Other)
  Sender: FDA-Public Use
  Company Number: 2012-002574

PATIENT
  Age: 61 Year
  Sex: Female
  Weight: 55 kg

DRUGS (18)
  1. ACTONEL [Suspect]
     Active Substance: RISEDRONATE SODIUM
     Indication: OSTEOPOROSIS PROPHYLAXIS
     Dosage: 2002-2006
     Route: 048
     Dates: start: 2002, end: 2006
  2. ALLEGRA(FEXOFENADINE HYDROCHLORIDE) [Concomitant]
  3. FOSAMAX [Suspect]
     Active Substance: ALENDRONATE SODIUM
     Indication: OSTEOPOROSIS PROPHYLAXIS
     Route: 048
     Dates: start: 200112
  4. VAGEFEM(ESTRADIOL) [Concomitant]
  5. ACTONEL [Suspect]
     Active Substance: RISEDRONATE SODIUM
     Indication: OSTEOPOROSIS
     Dosage: 2002-2006
     Route: 048
     Dates: start: 2002, end: 2006
  6. BONIVA [Suspect]
     Active Substance: IBANDRONATE SODIUM
     Indication: OSTEOPOROSIS PROPHYLAXIS
     Route: 051
     Dates: start: 200704, end: 201007
  7. NEXIUM [Concomitant]
     Active Substance: ESOMEPRAZOLE MAGNESIUM
  8. FAMVIR/01226201/(FAMCICLOVIR) [Concomitant]
  9. ACTONEL [Suspect]
     Active Substance: RISEDRONATE SODIUM
     Route: 048
     Dates: start: 2002, end: 201007
  10. BONIVA [Suspect]
     Active Substance: IBANDRONATE SODIUM
     Indication: OSTEOPOROSIS
     Route: 051
     Dates: start: 200704, end: 201007
  11. ZEGRID/00661201/(OMEPRAZOLE) [Concomitant]
  12. KETOPROFEN(KETOPROFEN) [Concomitant]
  13. VALTREX(VALACICLOVIR HYDROCHLORIDE) [Concomitant]
  14. AMBIEN(ZOLPIDEM TARTRATE) [Concomitant]
  15. FOLIC ACID (FOLIC ACID) [Concomitant]
     Active Substance: FOLIC ACID
  16. FOSAMAX [Suspect]
     Active Substance: ALENDRONATE SODIUM
     Indication: OSTEOPOROSIS
     Route: 048
     Dates: start: 200112
  17. FEMARA(LETROZOLE) [Concomitant]
  18. RESTASIS(CICLOSPORIN) [Concomitant]

REACTIONS (8)
  - Hip fracture [None]
  - Femur fracture [None]
  - Stress fracture [None]
  - Fall [None]
  - Medical device pain [None]
  - Bone disorder [None]
  - Pain [None]
  - Low turnover osteopathy [None]

NARRATIVE: CASE EVENT DATE: 20040708
